FAERS Safety Report 6963437-2 (Version None)
Quarter: 2010Q3

REPORT INFORMATION
  Report Type: 
  Country: None (occurrence: None)
  Receive Date: 20100902
  Receipt Date: 20100826
  Transmission Date: 20110219
  Serious: Yes (Other)
  Sender: FDA-Public Use
  Company Number: B0664648A

PATIENT
  Age: 41 Year
  Sex: Female
  Weight: 51 kg

DRUGS (3)
  1. TYKERB [Suspect]
     Indication: BREAST CANCER
     Dosage: 1250MG PER DAY
     Route: 048
     Dates: start: 20100323, end: 20100601
  2. XELODA [Suspect]
     Indication: BREAST CANCER
     Dosage: 3000MG PER DAY
     Route: 048
     Dates: start: 20100323, end: 20100601
  3. PYDOXAL [Concomitant]
     Indication: PROPHYLAXIS
     Route: 048
     Dates: start: 20100523, end: 20100601

REACTIONS (1)
  - WHITE BLOOD CELL COUNT DECREASED [None]
